FAERS Safety Report 4711330-8 (Version None)
Quarter: 2005Q3

REPORT INFORMATION
  Report Type: 
  Country: None (occurrence: None)
  Receive Date: 20050711
  Receipt Date: 20050428
  Transmission Date: 20060218
  Serious: Yes (Congenital Anomaly)
  Sender: FDA-Public Use
  Company Number: JP-MERCK-0505USA00195B1

PATIENT

DRUGS (2)
  1. ZOCOR [Suspect]
  2. ZOCOR [Suspect]

REACTIONS (4)
  - CONGENITAL ANOMALY [None]
  - DRUG EXPOSURE DURING PREGNANCY [None]
  - FOETAL MALFORMATION [None]
  - TRANSMISSION OF DRUG VIA SEMEN [None]
